FAERS Safety Report 4954767-4 (Version None)
Quarter: 2006Q1

REPORT INFORMATION
  Report Type: 
  Country: None (occurrence: None)
  Receive Date: 20060322
  Receipt Date: 20060307
  Transmission Date: 20060701
  Serious: Yes (Hospitalization)
  Sender: FDA-Public Use
  Company Number: FR200603000689

PATIENT
  Age: 38 Year
  Sex: Male
  Weight: 70 kg

DRUGS (6)
  1. SOMATROPIN(SOMATROPIN) VIAL [Suspect]
     Indication: GROWTH HORMONE DEFICIENCY
     Dosage: 0.2 MG, DAILY (1/D), SUBCUTANEOUS
     Route: 058
     Dates: end: 20051225
  2. ATORVASTATIN CALCIUM [Concomitant]
  3. HYDROCORTISONE [Concomitant]
  4. LEVOTHYROXINE (LEVOTHYROXINE SODIUM) TABLET [Concomitant]
  5. NORPROLAC NOVARTIS (QUINAGOLIDE HYDROCHLORIDE) TABLET [Concomitant]
  6. ANDROTARDYL (TESTOSTERONE ENANTATE) [Concomitant]

REACTIONS (5)
  - BLOOD CORTISOL DECREASED [None]
  - BRAIN SCAN ABNORMAL [None]
  - DRUG RESISTANCE [None]
  - HEADACHE [None]
  - OPTIC ATROPHY [None]
